FAERS Safety Report 24537893 (Version 1)
Quarter: 2024Q4

REPORT INFORMATION
  Report Type: Spontaneous
  Country: GB (occurrence: GB)
  Receive Date: 20241023
  Receipt Date: 20241023
  Transmission Date: 20250114
  Serious: Yes (Life-Threatening, Other)
  Sender: SANDOZ
  Company Number: None

PATIENT
  Age: 65 Year

DRUGS (9)
  1. ROSUVASTATIN [Suspect]
     Active Substance: ROSUVASTATIN
     Indication: Blood cholesterol
     Dosage: 5-20MG
     Route: 065
  2. CLOPIDOGREL [Concomitant]
     Active Substance: CLOPIDOGREL BISULFATE
     Indication: Blood pressure measurement
     Dosage: UNK
     Route: 065
     Dates: start: 20230630
  3. CLOPIDOGREL [Concomitant]
     Active Substance: CLOPIDOGREL BISULFATE
     Indication: Thrombosis
  4. EZETIMIBE [Concomitant]
     Active Substance: EZETIMIBE
     Indication: Blood pressure measurement
     Dosage: UNK
     Route: 065
     Dates: start: 20230630
  5. EZETIMIBE [Concomitant]
     Active Substance: EZETIMIBE
     Indication: Thrombosis
  6. LERCANIDIPINE [Concomitant]
     Active Substance: LERCANIDIPINE
     Indication: Blood pressure measurement
     Dosage: UNK
     Route: 065
     Dates: start: 20230630
  7. LERCANIDIPINE [Concomitant]
     Active Substance: LERCANIDIPINE
     Indication: Thrombosis
  8. SERTRALINE [Concomitant]
     Active Substance: SERTRALINE HYDROCHLORIDE
     Indication: Blood pressure measurement
     Dosage: UNK
     Route: 065
     Dates: start: 20230630
  9. SERTRALINE [Concomitant]
     Active Substance: SERTRALINE HYDROCHLORIDE
     Indication: Thrombosis

REACTIONS (2)
  - Fatigue [Not Recovered/Not Resolved]
  - Fatigue [Unknown]

NARRATIVE: CASE EVENT DATE: 20230801
